FAERS Safety Report 4480568-X (Version None)
Quarter: 2004Q4

REPORT INFORMATION
  Report Type: 
  Country: None (occurrence: None)
  Receive Date: 20041019
  Receipt Date: 20041004
  Transmission Date: 20050328
  Serious: Yes (Hospitalization)
  Sender: FDA-Public Use
  Company Number: K200401487

PATIENT
  Age: 84 Year
  Sex: Female

DRUGS (8)
  1. ALTACE [Suspect]
     Dosage: SEE IMAGE
     Route: 048
     Dates: start: 20040712, end: 20040721
  2. ALTACE [Suspect]
     Dosage: SEE IMAGE
     Route: 048
     Dates: start: 20040721, end: 20040726
  3. TICLID [Suspect]
     Dosage: 250 MG, QD, ORAL
     Route: 048
     Dates: start: 19960701, end: 20040728
  4. PIPRAM (PIPEMIDIC ACID) [Concomitant]
  5. ACETAMINOPHEN [Concomitant]
  6. DILTIAZEM HYDROCHLORIDE [Concomitant]
  7. DISCOTRINE         (GLYCERYL TRINITRARE) [Concomitant]
  8. EURELIX           (PIRETANIDE) CAPSULE [Concomitant]

REACTIONS (2)
  - OESOPHAGEAL CANDIDIASIS [None]
  - SWOLLEN TONGUE [None]
